FAERS Safety Report 14199951 (Version 1)
Quarter: 2017Q4

REPORT INFORMATION
  Report Type: Spontaneous
  Country: US (occurrence: US)
  Receive Date: 20171117
  Receipt Date: 20171117
  Transmission Date: 20180321
  Serious: Yes (Hospitalization)
  Sender: FDA-Public Use
  Company Number: US-MYLANLABS-2017M1072424

PATIENT
  Age: 48 Year
  Sex: Male

DRUGS (12)
  1. SULPHAMETHOXAZOLE/TRIMETHOPRIM [Suspect]
     Active Substance: SULFAMETHOXAZOLE\TRIMETHOPRIM
     Indication: NOCARDIOSIS
     Dosage: INITIAL DOSE UNKNOWN. LATER, HE RECEIVED TABLETS AT 800 MG/160 MG
     Route: 065
  2. SULPHAMETHOXAZOLE/TRIMETHOPRIM [Suspect]
     Active Substance: SULFAMETHOXAZOLE\TRIMETHOPRIM
     Dosage: 15 MG/KG PER DAY. LATER, HE WAS AGAIN STARTED ON COTRIMOXAZOLE WITH UNKNOWN DOSE AND UNKNOWN ROUTE
     Route: 042
  3. LINEZOLID. [Suspect]
     Active Substance: LINEZOLID
     Dosage: 300 MG DAILY WHICH WAS CONTINUED FOR 8 WEEKS
     Route: 065
  4. PREDNISONE. [Suspect]
     Active Substance: PREDNISONE
     Indication: CHRONIC GRAFT VERSUS HOST DISEASE
     Dosage: HIGH-DOSE
     Route: 065
  5. LEVOFLOXACIN. [Concomitant]
     Active Substance: LEVOFLOXACIN
     Indication: PRODUCT USED FOR UNKNOWN INDICATION
     Route: 065
  6. SULPHAMETHOXAZOLE/TRIMETHOPRIM [Suspect]
     Active Substance: SULFAMETHOXAZOLE\TRIMETHOPRIM
     Indication: NOCARDIOSIS
     Dosage: 800MG/160MG. LATER, HE RECEIVED 15 MG/KG PER DAY VIA IV ROUTE
     Route: 065
  7. MOXIFLOXACIN. [Concomitant]
     Active Substance: MOXIFLOXACIN
     Indication: PRODUCT USED FOR UNKNOWN INDICATION
     Route: 065
  8. CEFTRIAXONE. [Concomitant]
     Active Substance: CEFTRIAXONE
     Indication: PRODUCT USED FOR UNKNOWN INDICATION
     Route: 065
  9. LINEZOLID. [Suspect]
     Active Substance: LINEZOLID
     Indication: NOCARDIOSIS
     Dosage: 600 MG DAILY, LATER, THE DOSE WAS REDUCED TO 300 MG DAILY
     Route: 065
  10. AKTIL                              /00852501/ [Concomitant]
     Active Substance: AMOXICILLIN\CLAVULANIC ACID
     Indication: PRODUCT USED FOR UNKNOWN INDICATION
     Route: 065
  11. TACROLIMUS. [Suspect]
     Active Substance: TACROLIMUS
     Indication: CHRONIC GRAFT VERSUS HOST DISEASE
     Dosage: HIGH-DOSE
     Route: 065
  12. MINOCYCLINE [Concomitant]
     Active Substance: MINOCYCLINE\MINOCYCLINE HYDROCHLORIDE
     Indication: PRODUCT USED FOR UNKNOWN INDICATION
     Route: 065

REACTIONS (12)
  - Neuropathy peripheral [Unknown]
  - Lung infection [Recovered/Resolved]
  - Hyperkalaemia [Unknown]
  - Hypotension [Recovered/Resolved]
  - Central nervous system infection [Recovered/Resolved]
  - Nocardiosis [Recovered/Resolved]
  - Nocardia sepsis [Recovered/Resolved]
  - Pancytopenia [Unknown]
  - Eye abscess [Recovered/Resolved]
  - Pathogen resistance [Unknown]
  - Pneumonia [Recovered/Resolved]
  - Acute kidney injury [Unknown]
